FAERS Safety Report 19748767 (Version 1)
Quarter: 2021Q3

REPORT INFORMATION
  Report Type: Spontaneous
  Country: US (occurrence: US)
  Receive Date: 20210825
  Receipt Date: 20210825
  Transmission Date: 20211014
  Serious: No
  Sender: FDA-Public Use
  Company Number: None

PATIENT
  Age: 31 Year
  Sex: Female
  Weight: 77.4 kg

DRUGS (10)
  1. DEXTROAMPHETAMINE ER SALTS [Concomitant]
  2. LEVOTHYROXINE. [Concomitant]
     Active Substance: LEVOTHYROXINE
  3. VITAMIN C [Concomitant]
     Active Substance: ASCORBIC ACID
  4. N?ACETYL?CYSTEINE [Concomitant]
  5. ZYRTEC [Concomitant]
     Active Substance: CETIRIZINE HYDROCHLORIDE
  6. METOPROLOL ER SUCC [Concomitant]
     Active Substance: METOPROLOL SUCCINATE
  7. METHYLPHENIDATE IR [Concomitant]
     Active Substance: METHYLPHENIDATE
  8. VITAMIN B [Concomitant]
     Active Substance: VITAMIN B
  9. IRON [Concomitant]
     Active Substance: IRON
  10. DEXTROAMPHET SACCHARAT, AMPHET ASPARTATE, DEXTROAMPHET SULFATE AND AMPHET SULFAT [Suspect]
     Active Substance: AMPHETAMINE ASPARTATE\AMPHETAMINE SULFATE\DEXTROAMPHETAMINE SACCHARATE\DEXTROAMPHETAMINE SULFATE
     Indication: HYPERSOMNIA
     Route: 048
     Dates: start: 20210727, end: 20210825

REACTIONS (6)
  - Yawning [None]
  - Impaired work ability [None]
  - Product substitution issue [None]
  - Hypersomnia [None]
  - Sluggishness [None]
  - Somnambulism [None]

NARRATIVE: CASE EVENT DATE: 20210727
